FAERS Safety Report 21034934 (Version 1)
Quarter: 2022Q3

REPORT INFORMATION
  Report Type: Other
  Country: US (occurrence: None)
  Receive Date: 20220701
  Receipt Date: 20220701
  Transmission Date: 20221027
  Serious: Yes (Other)
  Sender: FDA-Public Use
  Company Number: US-ROCHE-3111008

PATIENT
  Sex: Female

DRUGS (2)
  1. ESBRIET [Suspect]
     Active Substance: PIRFENIDONE
     Indication: Idiopathic pulmonary fibrosis
     Dosage: ONE BROWN BIG PILL THREE TIMES A DAY,
     Route: 048
     Dates: start: 20211130
  2. ESBRIET [Suspect]
     Active Substance: PIRFENIDONE
     Dosage: THREE TABLETS BY MOUTH THREE TIMES A DAY
     Route: 048

REACTIONS (4)
  - Skin exfoliation [Not Recovered/Not Resolved]
  - Burns third degree [Not Recovered/Not Resolved]
  - Sunburn [Not Recovered/Not Resolved]
  - Photosensitivity reaction [Unknown]
